FAERS Safety Report 7502194-8 (Version None)
Quarter: 2011Q2

REPORT INFORMATION
  Report Type: 
  Country: None (occurrence: None)
  Receive Date: 20110525
  Receipt Date: 20110520
  Transmission Date: 20111010
  Serious: Yes (Other)
  Sender: FDA-Public Use
  Company Number: US-PFIZER INC-2011083579

PATIENT
  Sex: Male
  Weight: 47 kg

DRUGS (4)
  1. GEODON [Suspect]
     Indication: AGGRESSION
     Dosage: 20 MG, 2X/DAY
     Route: 048
     Dates: start: 20100101
  2. GEODON [Suspect]
     Indication: AFFECTIVE DISORDER
  3. CONCERTA [Concomitant]
     Indication: ATTENTION DEFICIT/HYPERACTIVITY DISORDER
     Dosage: 54 AND 36 MG, DAILY, 1-2 YEARS
  4. ZOLOFT [Concomitant]
     Dosage: 100 MG, 2-3 YEARS

REACTIONS (5)
  - ANXIETY [None]
  - LOSS OF CONSCIOUSNESS [None]
  - PSYCHOTIC DISORDER [None]
  - HALLUCINATION [None]
  - ANGER [None]
